FAERS Safety Report 6455131-1 (Version None)
Quarter: 2009Q4

REPORT INFORMATION
  Report Type: 
  Country: None (occurrence: None)
  Receive Date: 20091118
  Receipt Date: 20091104
  Transmission Date: 20100525
  Serious: Yes (Hospitalization, Other)
  Sender: FDA-Public Use
  Company Number: ENT 2009-0182

PATIENT
  Age: 79 Year
  Sex: Female

DRUGS (14)
  1. COMTAN [Suspect]
     Indication: DRUG EFFECT DECREASED
     Dosage: 300 MG ORAL
     Route: 048
     Dates: start: 20090109, end: 20090714
  2. SYMMETREL [Suspect]
     Indication: PARKINSON'S DISEASE
     Dosage: 250 MG ORAL
     Route: 048
     Dates: start: 20090404, end: 20090415
  3. LEVODOPA BENSERAZIDE HYDROCHLORIDE [Concomitant]
  4. PRAMIPEXOLE DIHYDROCHLORIDE [Concomitant]
  5. SELEGILINE HCL [Concomitant]
  6. DOPS [Concomitant]
  7. EXCEGRAN [Concomitant]
  8. DISOPYRAMIDE [Concomitant]
  9. FOSAMAX [Concomitant]
  10. AZUNOL [Concomitant]
  11. GASMOTIN [Concomitant]
  12. MAGMITT [Concomitant]
  13. LOXONIN [Concomitant]
  14. LANDSEN [Concomitant]

REACTIONS (1)
  - HALLUCINATION [None]
